FAERS Safety Report 17165677 (Version 1)
Quarter: 2019Q4

REPORT INFORMATION
  Report Type: Spontaneous
  Country: FR (occurrence: FR)
  Receive Date: 20191217
  Receipt Date: 20191217
  Transmission Date: 20200122
  Serious: Yes (Hospitalization)
  Sender: FDA-Public Use
  Company Number: FR-PFIZER INC-2019431138

PATIENT
  Age: 69 Year
  Sex: Female

DRUGS (3)
  1. DOCETAXEL. [Suspect]
     Active Substance: DOCETAXEL
     Indication: NON-SMALL CELL LUNG CANCER
     Dosage: 05/SEP/2019 LAST DOSE ADMINISTRATION OF STUDY TREATMENT
     Route: 065
     Dates: start: 20190813, end: 20190905
  2. PERTUZUMAB. [Suspect]
     Active Substance: PERTUZUMAB
     Indication: NON-SMALL CELL LUNG CANCER
     Dosage: 05/SEP/2019 LAST DOSE ADMINISTRATION OF STUDY TREATMENT
     Route: 065
     Dates: start: 20190813, end: 20190905
  3. TRASTUZUMAB. [Suspect]
     Active Substance: TRASTUZUMAB
     Indication: NON-SMALL CELL LUNG CANCER
     Dosage: 05/SEP/2019 LAST DOSE ADMINISTRATION OF STUDY TREATMENT
     Route: 065
     Dates: start: 20190813, end: 20190905

REACTIONS (3)
  - Erysipelas [Recovered/Resolved]
  - Febrile neutropenia [Recovered/Resolved]
  - Pyrexia [Not Recovered/Not Resolved]

NARRATIVE: CASE EVENT DATE: 20190908
